FAERS Safety Report 20394084 (Version 1)
Quarter: 2022Q1

REPORT INFORMATION
  Report Type: Report from Study
  Country: US (occurrence: US)
  Receive Date: 20220129
  Receipt Date: 20220129
  Transmission Date: 20220424
  Serious: Yes (Other)
  Sender: FDA-Public Use
  Company Number: US-ABBVIE-22K-163-4251582-00

PATIENT
  Age: 65 Year
  Sex: Female

DRUGS (2)
  1. VENETOCLAX [Suspect]
     Active Substance: VENETOCLAX
     Indication: Chronic lymphocytic leukaemia
     Route: 048
  2. RITUXIMAB [Concomitant]
     Active Substance: RITUXIMAB
     Indication: Product used for unknown indication
     Route: 065

REACTIONS (15)
  - Pulmonary embolism [Unknown]
  - Deep vein thrombosis [Unknown]
  - Device related sepsis [Unknown]
  - Nephrolithiasis [Unknown]
  - Dizziness [Unknown]
  - Diplopia [Unknown]
  - Gait disturbance [Unknown]
  - Headache [Unknown]
  - Drug intolerance [Unknown]
  - Asthenia [Unknown]
  - Fatigue [Unknown]
  - Insomnia [Unknown]
  - Listless [Unknown]
  - Pain in extremity [Unknown]
  - Weight increased [Unknown]
